FAERS Safety Report 9339038 (Version 1)
Quarter: 2013Q2

REPORT INFORMATION
  Report Type: Spontaneous
  Country: US (occurrence: None)
  Receive Date: 20130531
  Receipt Date: 20130531
  Transmission Date: 20140414
  Serious: Yes (Other)
  Sender: FDA-Public Use
  Company Number: 2013036141

PATIENT
  Sex: Male
  Weight: 111.13 kg

DRUGS (21)
  1. ZEMAIRA (ALPHA-1 PROTEINASE INHIBITOR (HUMAN)) [Suspect]
     Indication: ALPHA-1 ANTI-TRYPSIN DEFICIENCY
     Dosage: 60 MG/MK 1X/WEEK, ??-???-2013, 8.9ML/MIN.
     Route: 042
  2. LEVAQUIN (LEVOFLOXACIN) [Concomitant]
  3. DIPHENHYDRAMINE (DIPHENHYDRAMINE) [Concomitant]
  4. SODIUM CHLORIDE [Concomitant]
  5. EPI-PEN (EPINEPHRINE HYDROCHLORIDE) [Concomitant]
  6. LMX (LIDOCAINE) [Concomitant]
  7. ZOCOR (SIMVASTATIN) [Concomitant]
  8. ANDROGEL (TESTOSTERONE) [Concomitant]
  9. CITALOPRAM (CITALOPRAM) [Concomitant]
  10. LISINOPRIL (LISINOPRIL) [Concomitant]
  11. NYSTOP (NYSTATIN) [Concomitant]
  12. FISH OIL (FISH OIL) [Concomitant]
  13. HYDROCORTISONE PRAMOXINE (HYDROCORTISONE W/PRAMOXINE) [Concomitant]
  14. GLUCOSAMINE CHONDROITIN (CHONDROITIN W/GLUCOSAMINE) [Concomitant]
  15. BENADRYL (DIPHENHYDRAMINE HYDROCHLORIDE) [Concomitant]
  16. ALBUTEROL (SALBUTAMOL) [Concomitant]
  17. CENTRUM (CENTRUM /00554501/) [Concomitant]
  18. XLONAZEPAM (CLONAZEPAM) [Concomitant]
  19. MAXIDE (DEXAMETHASONE) [Concomitant]
  20. PRILOSEC [Concomitant]
  21. SYNTHROID (LEVOTHYROXINE SODIUM) [Concomitant]

REACTIONS (2)
  - Upper respiratory tract infection [None]
  - Lower respiratory tract infection [None]
